FAERS Safety Report 8598015-5 (Version None)
Quarter: 2012Q3

REPORT INFORMATION
  Report Type: 
  Country: None (occurrence: None)
  Receive Date: 20120816
  Receipt Date: 20120806
  Transmission Date: 20120928
  Serious: Yes (Other)
  Sender: FDA-Public Use
  Company Number: US-BRISTOL-MYERS SQUIBB COMPANY-16838732

PATIENT
  Age: 48 Year
  Sex: Female

DRUGS (4)
  1. ADRIAMYCIN PFS [Suspect]
     Indication: ANAL CANCER
  2. MITOMYCIN [Suspect]
     Indication: ANAL CANCER
  3. MITOMYCIN [Suspect]
  4. FLUOROURACIL [Suspect]
     Indication: ANAL CANCER

REACTIONS (1)
  - PULMONARY VENO-OCCLUSIVE DISEASE [None]
